FAERS Safety Report 4928865-5 (Version None)
Quarter: 2006Q1

REPORT INFORMATION
  Report Type: 
  Country: None (occurrence: None)
  Receive Date: 20060224
  Receipt Date: 20060215
  Transmission Date: 20060701
  Serious: Yes (Life-Threatening, Hospitalization)
  Sender: FDA-Public Use
  Company Number: HQWYE909021FEB06

PATIENT
  Age: 58 Year
  Sex: Female

DRUGS (6)
  1. MYLOTARG [Suspect]
     Indication: ACUTE MYELOID LEUKAEMIA
     Dosage: 9 MG/M^2 1X PER 1 DAY
     Route: 041
     Dates: start: 20051213, end: 20051213
  2. CEFPIROME [Concomitant]
  3. MINOPHAGEN C (AMINOACETIC ACID/GLYCYRRHIZIC ACID) [Concomitant]
  4. FUNGUARD (MICAFUNGIN SODIUM) [Concomitant]
  5. CIPRO [Concomitant]
  6. NEUTROGIN (LENOGRASTIM) [Concomitant]

REACTIONS (7)
  - FEBRILE NEUTROPENIA [None]
  - HAEMATOCRIT DECREASED [None]
  - HAEMOGLOBIN DECREASED [None]
  - LIVER ABSCESS [None]
  - PLATELET COUNT DECREASED [None]
  - RED BLOOD CELL COUNT DECREASED [None]
  - WHITE BLOOD CELL COUNT DECREASED [None]
